FAERS Safety Report 23686558 (Version 1)
Quarter: 2024Q1

REPORT INFORMATION
  Report Type: Spontaneous
  Country: US (occurrence: None)
  Receive Date: 20240328
  Receipt Date: 20240328
  Transmission Date: 20240410
  Serious: Yes (Hospitalization)
  Sender: FDA-Public Use
  Company Number: None

PATIENT
  Age: 56 Year
  Sex: Female

DRUGS (1)
  1. COSENTYX [Suspect]
     Active Substance: SECUKINUMAB
     Dosage: FREQUENCY : MONTHLY;?

REACTIONS (5)
  - Intracranial aneurysm [None]
  - Cerebrovascular accident [None]
  - Atrial fibrillation [None]
  - Therapeutic product effect incomplete [None]
  - Stent placement [None]
